FAERS Safety Report 8166893-X (Version None)
Quarter: 2012Q1

REPORT INFORMATION
  Report Type: 
  Country: None (occurrence: None)
  Receive Date: 20120227
  Receipt Date: 20120215
  Transmission Date: 20120608
  Serious: Yes (Death, Disabling)
  Sender: FDA-Public Use
  Company Number: FR-ROCHE-1040643

PATIENT
  Sex: Female

DRUGS (2)
  1. ZEVALIN [Concomitant]
     Dates: start: 20081023
  2. MABTHERA [Suspect]
     Indication: B-CELL LYMPHOMA
     Dates: start: 20081016

REACTIONS (1)
  - ACUTE MYELOID LEUKAEMIA [None]
